FAERS Safety Report 4880717-5 (Version None)
Quarter: 2006Q1

REPORT INFORMATION
  Report Type: 
  Country: None (occurrence: None)
  Receive Date: 20060113
  Receipt Date: 20051207
  Transmission Date: 20060701
  Serious: Yes (Hospitalization, Disabling, Other)
  Sender: FDA-Public Use
  Company Number: US-MERCK-0512USA00953

PATIENT
  Age: 53 Year
  Sex: Female
  Weight: 103 kg

DRUGS (12)
  1. ASPIRIN [Concomitant]
     Route: 065
  2. STARLIX [Concomitant]
     Route: 065
  3. BACLOFEN [Concomitant]
     Route: 065
  4. SALSALATE [Concomitant]
     Route: 065
  5. PREVACID [Concomitant]
     Route: 065
  6. DIAZEPAM [Concomitant]
     Route: 065
  7. LORCET-HD [Concomitant]
     Route: 065
  8. NITROQUICK [Concomitant]
     Route: 065
  9. [THERAPY UNSPECIFIED] [Concomitant]
     Route: 065
  10. VIOXX [Suspect]
     Indication: ARTHRITIS
     Route: 048
     Dates: start: 19990501, end: 20040901
  11. CALAN [Concomitant]
     Route: 065
  12. PLAVIX [Concomitant]
     Route: 065

REACTIONS (10)
  - ABDOMINAL PAIN UPPER [None]
  - ASTHENIA [None]
  - BACK PAIN [None]
  - BLADDER DISORDER [None]
  - CHEST PAIN [None]
  - GASTRIC DISORDER [None]
  - INTESTINAL OBSTRUCTION [None]
  - MYOCARDIAL INFARCTION [None]
  - NECK PAIN [None]
  - PAIN IN EXTREMITY [None]
